FAERS Safety Report 9643000 (Version 1)
Quarter: 2013Q4

REPORT INFORMATION
  Report Type: Spontaneous
  Country: US (occurrence: US)
  Receive Date: 20131024
  Receipt Date: 20131024
  Transmission Date: 20140711
  Serious: Yes (Other)
  Sender: FDA-Public Use
  Company Number: US-TEVA-439204USA

PATIENT
  Age: 63 Year
  Sex: Male
  Weight: 122.58 kg

DRUGS (3)
  1. QNASL [Suspect]
     Indication: HYPERSENSITIVITY
     Route: 045
  2. MULTIVITAMIN [Concomitant]
  3. GLUCOSAMINE CHONDROITIN [Concomitant]

REACTIONS (4)
  - Hypertension [Not Recovered/Not Resolved]
  - Cataract operation [Recovered/Resolved]
  - Cataract [Not Recovered/Not Resolved]
  - Exostosis [Not Recovered/Not Resolved]
